FAERS Safety Report 8161299-1 (Version None)
Quarter: 2012Q1

REPORT INFORMATION
  Report Type: 
  Country: None (occurrence: None)
  Receive Date: 20120224
  Receipt Date: 20120213
  Transmission Date: 20120608
  Serious: Yes (Hospitalization)
  Sender: FDA-Public Use
  Company Number: CA-CELGENEUS-028-21880-11073046

PATIENT
  Sex: Male

DRUGS (9)
  1. MILK OF MAGNESIA TAB [Concomitant]
     Route: 065
  2. TERAZOSIN HCL [Concomitant]
     Route: 065
  3. REVLIMID [Suspect]
     Indication: MULTIPLE MYELOMA
     Dosage: 10 MILLIGRAM
     Route: 048
     Dates: start: 20100315
  4. FLOMAX [Concomitant]
     Route: 065
  5. RANTIDINE [Concomitant]
     Route: 065
  6. ASPIRIN [Concomitant]
     Dosage: 81 MILLIGRAM
     Route: 065
  7. CALCIUM CARBONATE [Concomitant]
     Route: 065
  8. METFORMIN HCL [Concomitant]
     Route: 065
  9. DIOVAN [Concomitant]
     Route: 065

REACTIONS (2)
  - CONVULSION [None]
  - DYSPEPSIA [None]
